FAERS Safety Report 6982862-7 (Version None)
Quarter: 2010Q3

REPORT INFORMATION
  Report Type: 
  Country: None (occurrence: None)
  Receive Date: 20100914
  Receipt Date: 20100329
  Transmission Date: 20110219
  Serious: No
  Sender: FDA-Public Use
  Company Number: US-PFIZER INC-2010040656

PATIENT
  Sex: Female
  Weight: 99.773 kg

DRUGS (3)
  1. LYRICA [Suspect]
     Indication: NEUROPATHY PERIPHERAL
     Dosage: UNK
     Dates: start: 20100201
  2. LEXAPRO [Concomitant]
     Dosage: 20 MG, UNK
  3. LAMICTAL [Concomitant]
     Dosage: 400 MG, UNK

REACTIONS (3)
  - DISTURBANCE IN ATTENTION [None]
  - FEELING ABNORMAL [None]
  - SOMNOLENCE [None]
